FAERS Safety Report 4282392-X (Version None)
Quarter: 2004Q1

REPORT INFORMATION
  Report Type: 
  Country: None (occurrence: None)
  Receive Date: 20040130
  Receipt Date: 20031016
  Transmission Date: 20041129
  Serious: Yes (Hospitalization, Disabling, Other)
  Sender: FDA-Public Use
  Company Number: WAES 0310USA01950

PATIENT
  Age: 57 Year
  Sex: Female
  Weight: 66 kg

DRUGS (5)
  1. LIPITOR [Concomitant]
     Dates: start: 20000401, end: 20000601
  2. VIOXX [Suspect]
     Indication: ARTHRITIS
     Route: 048
     Dates: start: 19990101, end: 20000601
  3. VIOXX [Suspect]
     Route: 048
     Dates: start: 20000601
  4. VIOXX [Suspect]
     Indication: GOUT
     Route: 048
     Dates: start: 19990101, end: 20000601
  5. VIOXX [Suspect]
     Route: 048
     Dates: start: 20000601

REACTIONS (20)
  - ALANINE AMINOTRANSFERASE INCREASED [None]
  - ARTERIAL BRUIT [None]
  - ASPARTATE AMINOTRANSFERASE INCREASED [None]
  - BLOOD CHOLESTEROL INCREASED [None]
  - CAROTID ARTERY OCCLUSION [None]
  - CEREBRAL INFARCTION [None]
  - CEREBROVASCULAR ACCIDENT [None]
  - DIABETES MELLITUS NON-INSULIN-DEPENDENT [None]
  - DIASTOLIC DYSFUNCTION [None]
  - DIZZINESS [None]
  - DYSARTHRIA [None]
  - FALL [None]
  - FATIGUE [None]
  - HEMIPLEGIA [None]
  - JOINT INJURY [None]
  - LEFT VENTRICULAR FAILURE [None]
  - NAUSEA [None]
  - PAIN [None]
  - RESTLESSNESS [None]
  - WHEEZING [None]
